FAERS Safety Report 8798004 (Version 3)
Quarter: 2014Q3

REPORT INFORMATION
  Report Type: Report from Study
  Country: US (occurrence: US)
  Receive Date: 20120919
  Receipt Date: 20140825
  Transmission Date: 20150326
  Serious: Yes (Death, Hospitalization)
  Sender: FDA-Public Use
  Company Number: US-ROCHE-1103444

PATIENT
  Age: 55 Year
  Sex: Female
  Weight: 66.74 kg

DRUGS (19)
  1. AVASTIN [Suspect]
     Active Substance: BEVACIZUMAB
     Indication: NON-SMALL CELL LUNG CANCER
     Route: 065
     Dates: start: 20110718
  2. AVASTIN [Suspect]
     Active Substance: BEVACIZUMAB
     Indication: LUNG NEOPLASM MALIGNANT
     Route: 065
     Dates: start: 20091012
  3. DECADRON [Concomitant]
     Active Substance: DEXAMETHASONE
     Route: 065
  4. LEUCOVORIN [Concomitant]
     Active Substance: LEUCOVORIN
     Route: 065
  5. GEMZAR [Concomitant]
     Active Substance: GEMCITABINE HYDROCHLORIDE
     Route: 065
  6. OXALIPLATIN. [Concomitant]
     Active Substance: OXALIPLATIN
  7. HCTZ [Concomitant]
     Active Substance: HYDROCHLOROTHIAZIDE
  8. FENTANYL. [Concomitant]
     Active Substance: FENTANYL
     Route: 065
  9. DECADRON [Concomitant]
     Active Substance: DEXAMETHASONE
     Route: 065
  10. XELODA [Suspect]
     Active Substance: CAPECITABINE
     Indication: LUNG NEOPLASM MALIGNANT
     Route: 065
  11. ERBITUX [Concomitant]
     Active Substance: CETUXIMAB
  12. LISINOPRIL. [Concomitant]
     Active Substance: LISINOPRIL
  13. GRANISETRON [Suspect]
     Active Substance: GRANISETRON
     Indication: LUNG NEOPLASM MALIGNANT
     Route: 065
  14. ALOXI [Concomitant]
     Active Substance: PALONOSETRON HYDROCHLORIDE
     Route: 065
  15. CAMPTOSAR [Concomitant]
     Active Substance: IRINOTECAN HYDROCHLORIDE
     Route: 065
  16. ALOXI [Concomitant]
     Active Substance: PALONOSETRON HYDROCHLORIDE
     Route: 065
  17. CAMPTOSAR [Concomitant]
     Active Substance: IRINOTECAN HYDROCHLORIDE
     Route: 065
  18. 5-FU [Concomitant]
     Active Substance: FLUOROURACIL
     Route: 065
  19. BENADRYL [Concomitant]
     Active Substance: DIPHENHYDRAMINE HYDROCHLORIDE
     Route: 065

REACTIONS (22)
  - Disease progression [Unknown]
  - Depressed mood [Unknown]
  - Abdominal pain [Unknown]
  - Abnormal behaviour [Unknown]
  - Delusion [Not Recovered/Not Resolved]
  - Early satiety [Unknown]
  - Diarrhoea [Unknown]
  - Vomiting [Not Recovered/Not Resolved]
  - Headache [Unknown]
  - Pain [Unknown]
  - Memory impairment [Unknown]
  - Tearfulness [Unknown]
  - Anger [Unknown]
  - Weight decreased [Unknown]
  - Toxicity to various agents [Unknown]
  - Abdominal discomfort [Unknown]
  - Speech disorder [Unknown]
  - Aggression [Unknown]
  - Delusion [Unknown]
  - Death [Fatal]
  - Nausea [Not Recovered/Not Resolved]
  - Fatigue [Unknown]

NARRATIVE: CASE EVENT DATE: 20110606
